FAERS Safety Report 13191833 (Version 1)
Quarter: 2017Q1

REPORT INFORMATION
  Report Type: Spontaneous
  Country: US (occurrence: US)
  Receive Date: 20170206
  Receipt Date: 20170206
  Transmission Date: 20170428
  Serious: Yes (Hospitalization)
  Sender: FDA-Public Use
  Company Number: None

PATIENT
  Age: 48 Year
  Sex: Female
  Weight: 69.3 kg

DRUGS (4)
  1. VITAMIN C [Concomitant]
     Active Substance: ASCORBIC ACID
  2. CHERATUSSIN AC [Suspect]
     Active Substance: CODEINE PHOSPHATE\GUAIFENESIN
     Indication: PNEUMONIA
     Dosage: ?          QUANTITY:2 DROP(S);?
     Route: 048
     Dates: start: 20170204, end: 20170205
  3. ATENOLOL. [Concomitant]
     Active Substance: ATENOLOL
  4. VITAMIN D AND MAGNESIUM [Concomitant]

REACTIONS (3)
  - Lip disorder [None]
  - Swelling face [None]
  - Hypoaesthesia [None]

NARRATIVE: CASE EVENT DATE: 20170205
